FAERS Safety Report 15180775 (Version 3)
Quarter: 2018Q4

REPORT INFORMATION
  Report Type: Spontaneous
  Country: US (occurrence: US)
  Receive Date: 20180723
  Receipt Date: 20181129
  Transmission Date: 20190204
  Serious: Yes (Other)
  Sender: FDA-Public Use
  Company Number: US-PFIZER INC-2018291520

PATIENT
  Age: 58 Year
  Sex: Female
  Weight: 66.67 kg

DRUGS (2)
  1. LYRICA [Suspect]
     Active Substance: PREGABALIN
     Indication: FIBROMYALGIA
     Dosage: 300 MG, 2X/DAY
     Route: 048
     Dates: start: 2017
  2. NORCO [Concomitant]
     Active Substance: ACETAMINOPHEN\HYDROCODONE BITARTRATE
     Indication: PAIN
     Dosage: 10/325, TABLET, ORALLY, ONE EVERY FOUR HOURS
     Route: 048

REACTIONS (4)
  - Fatigue [Unknown]
  - Weight increased [Unknown]
  - Overdose [Unknown]
  - Sepsis [Unknown]
